FAERS Safety Report 14023950 (Version 1)
Quarter: 2017Q3

REPORT INFORMATION
  Report Type: Spontaneous
  Country: US (occurrence: US)
  Receive Date: 20170928
  Receipt Date: 20170928
  Transmission Date: 20171128
  Serious: No
  Sender: FDA-Public Use
  Company Number: US-SA-2016SA228081

PATIENT
  Age: 51 Year
  Sex: Female

DRUGS (8)
  1. AUBAGIO [Suspect]
     Active Substance: TERIFLUNOMIDE
     Indication: MULTIPLE SCLEROSIS
     Route: 048
  2. FLUOROMETHOLONE. [Concomitant]
     Active Substance: FLUOROMETHOLONE
  3. AMANTADINE HYDROCHLORIDE. [Concomitant]
     Active Substance: AMANTADINE HYDROCHLORIDE
  4. TAMSULOSIN HYDROCHLORIDE. [Concomitant]
     Active Substance: TAMSULOSIN HYDROCHLORIDE
  5. TRAVATAN [Concomitant]
     Active Substance: TRAVOPROST
  6. TRIMIPRAMINE MALEATE. [Concomitant]
     Active Substance: TRIMIPRAMINE MALEATE
  7. AMPYRA [Concomitant]
     Active Substance: DALFAMPRIDINE
  8. VITAMIN D [Concomitant]
     Active Substance: CHOLECALCIFEROL

REACTIONS (7)
  - Gait disturbance [Unknown]
  - Balance disorder [Unknown]
  - Fall [Unknown]
  - Fine motor skill dysfunction [Unknown]
  - Speech disorder [Unknown]
  - Pain in extremity [Unknown]
  - Hypoaesthesia [Unknown]
